FAERS Safety Report 25167099 (Version 5)
Quarter: 2025Q3

REPORT INFORMATION
  Report Type: Report from Study
  Country: US (occurrence: US)
  Receive Date: 20250407
  Receipt Date: 20250729
  Transmission Date: 20251021
  Serious: Yes (Other)
  Sender: SUNOVION
  Company Number: US-SMPA-2025SPA003799

PATIENT

DRUGS (16)
  1. ORGOVYX [Suspect]
     Active Substance: RELUGOLIX
     Indication: Prostate cancer
     Dosage: 360 MG, SINGLE
     Route: 048
     Dates: start: 20250302, end: 20250302
  2. ORGOVYX [Suspect]
     Active Substance: RELUGOLIX
     Dosage: 120 MG, QD
     Route: 048
     Dates: start: 20250303
  3. AMLODIPINE BESYLATE [Concomitant]
     Active Substance: AMLODIPINE BESYLATE
     Route: 065
  4. ATORVASTATIN [Concomitant]
     Active Substance: ATORVASTATIN
     Route: 065
  5. AZELASTINE HYDROCHLORIDE\FLUTICASONE PROPIONATE [Concomitant]
     Active Substance: AZELASTINE HYDROCHLORIDE\FLUTICASONE PROPIONATE
     Route: 045
  6. CLOPIDOGREL BISULFATE [Concomitant]
     Active Substance: CLOPIDOGREL BISULFATE
     Route: 065
  7. FENOFIBRATE [Concomitant]
     Active Substance: FENOFIBRATE
     Route: 065
  8. JARDIANCE [Concomitant]
     Active Substance: EMPAGLIFLOZIN
     Route: 065
  9. LORAZEPAM [Concomitant]
     Active Substance: LORAZEPAM
     Route: 065
  10. LOSARTAN [Concomitant]
     Active Substance: LOSARTAN
     Route: 065
  11. METOPROLOL TARTRATE [Concomitant]
     Active Substance: METOPROLOL TARTRATE
     Route: 065
  12. NATEGLINIDE [Concomitant]
     Active Substance: NATEGLINIDE
     Route: 065
  13. LORATADINE [Concomitant]
     Active Substance: LORATADINE
     Route: 065
  14. ASPIRIN [Concomitant]
     Active Substance: ASPIRIN
     Route: 065
  15. TAMSULOSIN [Concomitant]
     Active Substance: TAMSULOSIN
     Route: 065
  16. XALATAN [Concomitant]
     Active Substance: LATANOPROST
     Route: 047

REACTIONS (10)
  - Dental operation [Unknown]
  - Pollakiuria [Unknown]
  - Bowel movement irregularity [Unknown]
  - Urine flow decreased [Unknown]
  - Blood glucose fluctuation [Unknown]
  - Hot flush [Unknown]
  - Libido decreased [Unknown]
  - Fatigue [Unknown]
  - Blood glucose increased [Unknown]
  - Hyperhidrosis [Unknown]
